FAERS Safety Report 4487023-1 (Version None)
Quarter: 2004Q4

REPORT INFORMATION
  Report Type: 
  Country: None (occurrence: None)
  Receive Date: 20041027
  Receipt Date: 20041013
  Transmission Date: 20050328
  Serious: Yes (Life-Threatening, Hospitalization)
  Sender: FDA-Public Use
  Company Number: PHNU2004DE03515

PATIENT
  Sex: Male
  Weight: 75 kg

DRUGS (2)
  1. CLOZARIL [Suspect]
     Indication: SCHIZOPHRENIA
     Dosage: 300 MG/DAY
     Route: 048
     Dates: start: 19940101
  2. SOLIAN [Concomitant]
     Dosage: 300 MG/DAY
     Route: 048
     Dates: start: 20040201

REACTIONS (1)
  - LYMPHOMA [None]
